FAERS Safety Report 11805214 (Version 1)
Quarter: 2015Q4

REPORT INFORMATION
  Report Type: Other
  Country: DE (occurrence: DE)
  Receive Date: 20151206
  Receipt Date: 20151206
  Transmission Date: 20160305
  Serious: Yes (Congenital Anomaly, Other)
  Sender: FDA-Public Use
  Company Number: DE-MYLANLABS-2015M1042174

PATIENT

DRUGS (2)
  1. VELNATAL PLUS [Concomitant]
     Indication: PROPHYLAXIS OF NEURAL TUBE DEFECT
     Dosage: 0.4 MG, QD (0.4 [MG/D ])
     Route: 064
  2. CARBADURA 300 MG RETARD [Suspect]
     Active Substance: CARBAMAZEPINE
     Indication: EPILEPSY
     Dosage: 300 MG, BID (600 [MG/D ]/ FOR THE LAST 7 YEARS)
     Route: 064
     Dates: start: 20140411, end: 20150116

REACTIONS (5)
  - Developmental hip dysplasia [Recovered/Resolved]
  - Developmental delay [Not Recovered/Not Resolved]
  - Foetal exposure during pregnancy [Unknown]
  - Microcephaly [Not Recovered/Not Resolved]
  - Hypertonia neonatal [Not Recovered/Not Resolved]

NARRATIVE: CASE EVENT DATE: 20150116
